FAERS Safety Report 9121793 (Version 1)
Quarter: 2013Q1

REPORT INFORMATION
  Report Type: Spontaneous
  Country: JP (occurrence: JP)
  Receive Date: 20130227
  Receipt Date: 20130227
  Transmission Date: 20140127
  Serious: Yes (Hospitalization)
  Sender: FDA-Public Use
  Company Number: JP-009507513-1302JPN011662

PATIENT
  Age: 80 Year
  Sex: Male

DRUGS (7)
  1. MENESIT TABLETS - 100 [Suspect]
     Dosage: 200 MG TWO ADMINISTERING
     Route: 048
  2. RIFAMPIN [Concomitant]
     Dosage: 450 MG, DIVIDED DOSE FREQUENCY UNKNOWN
  3. ISONIAZID [Concomitant]
     Dosage: 300 MG, DIVIDED DOSE FREQUENCY UNKNOWN
  4. EBUTOL [Concomitant]
     Dosage: 750 MG, DIVIDED DOSE FREQUENCY UNKNOWN
  5. BI SIFROL [Concomitant]
     Dosage: 0.5 TWO TABS
  6. GASTER [Concomitant]
     Dosage: DAILY DOSAGE UNKNOWN
  7. [COMPOSITION UNSPECIFIED] [Concomitant]
     Dosage: DAILY DOSAGE UNKNOWN

REACTIONS (2)
  - Tuberculosis [Unknown]
  - Tremor [Unknown]
